FAERS Safety Report 9731571 (Version 2)
Quarter: 2014Q1

REPORT INFORMATION
  Report Type: Spontaneous
  Country: US (occurrence: US)
  Receive Date: 20131205
  Receipt Date: 20140205
  Transmission Date: 20141002
  Serious: No
  Sender: FDA-Public Use
  Company Number: US-009507513-1312USA001471

PATIENT
  Age: 49 Year
  Sex: Female

DRUGS (6)
  1. EMEND [Suspect]
     Indication: PROPHYLAXIS OF NAUSEA AND VOMITING
     Dosage: 150 MG, UNK
     Route: 042
     Dates: start: 20131115, end: 20131115
  2. EMEND [Suspect]
     Dosage: 150 MG, UNK
     Route: 042
     Dates: start: 20131025, end: 20131025
  3. TAXOL [Suspect]
     Dosage: UNK
     Dates: start: 20131025, end: 20131025
  4. CARBOPLATIN [Suspect]
     Dosage: UNK
     Dates: start: 20131115, end: 20131115
  5. CARBOPLATIN [Suspect]
     Dosage: UNK
     Dates: start: 20131025, end: 20131025
  6. GEMCITABINE [Suspect]
     Dosage: UNK
     Dates: start: 20131115, end: 20131115

REACTIONS (2)
  - Adverse reaction [Recovered/Resolved]
  - Adverse reaction [Recovered/Resolved]
